FAERS Safety Report 4392898-0 (Version None)
Quarter: 2004Q3

REPORT INFORMATION
  Report Type: 
  Country: None (occurrence: None)
  Receive Date: 20040702
  Receipt Date: 20040414
  Transmission Date: 20050211
  Serious: Yes (Other)
  Sender: FDA-Public Use
  Company Number: 2004UW07522

PATIENT
  Age: 81 Year
  Sex: Male
  Weight: 78.9259 kg

DRUGS (2)
  1. CRESTOR [Suspect]
     Indication: HYPERCHOLESTEROLAEMIA
     Dosage: 10 MG QD PO
     Route: 048
  2. PLAVIX [Concomitant]

REACTIONS (1)
  - FAECAL VOLUME DECREASED [None]
